FAERS Safety Report 12860821 (Version 1)
Quarter: 2016Q4

REPORT INFORMATION
  Report Type: Spontaneous
  Country: AU (occurrence: AU)
  Receive Date: 20161019
  Receipt Date: 20161019
  Transmission Date: 20170207
  Serious: Yes (Life-Threatening, Hospitalization, Other)
  Sender: FDA-Public Use
  Company Number: PHHY2016AU140855

PATIENT
  Sex: Female

DRUGS (3)
  1. INTERFERON ALFA NOS [Suspect]
     Active Substance: INTERFERON ALFA-2A OR INTERFERON ALFA-2B
     Indication: SYSTEMIC MASTOCYTOSIS
     Route: 065
  2. RANITIDINE. [Suspect]
     Active Substance: RANITIDINE
     Indication: SYSTEMIC MASTOCYTOSIS
     Dosage: UNK
     Route: 065
  3. LORATADINE SANDOZ [Suspect]
     Active Substance: LORATADINE
     Indication: SYSTEMIC MASTOCYTOSIS
     Route: 065

REACTIONS (2)
  - Tryptase increased [Unknown]
  - Anaphylactic reaction [Unknown]
